FAERS Safety Report 6557301-0 (Version None)
Quarter: 2010Q1

REPORT INFORMATION
  Report Type: 
  Country: None (occurrence: None)
  Receive Date: 20100129
  Receipt Date: 20100118
  Transmission Date: 20100710
  Serious: Yes (Hospitalization, Other)
  Sender: FDA-Public Use
  Company Number: US-BAYER-200828721NA

PATIENT
  Age: 69 Year
  Sex: Female

DRUGS (6)
  1. BETASERON [Suspect]
     Indication: RELAPSING-REMITTING MULTIPLE SCLEROSIS
     Route: 058
     Dates: start: 20020520, end: 20080205
  2. BETASERON [Suspect]
     Route: 058
     Dates: end: 20080414
  3. BETASERON [Suspect]
     Dosage: TOTAL DAILY DOSE: 8 MIU
     Route: 058
     Dates: start: 20080501, end: 20090709
  4. BETASERON [Suspect]
     Route: 058
     Dates: start: 20090812, end: 20090907
  5. BETASERON [Suspect]
     Dosage: TOTAL DAILY DOSE: 8 MIU
     Route: 058
     Dates: start: 20091013, end: 20100111
  6. TYLENOL (CAPLET) [Concomitant]
     Dosage: PRIOR TO BETASERON INJECTIONS

REACTIONS (8)
  - BALANCE DISORDER [None]
  - DIPLOPIA [None]
  - FALL [None]
  - GAIT DISTURBANCE [None]
  - MENTAL STATUS CHANGES [None]
  - MULTIPLE SCLEROSIS RELAPSE [None]
  - SOMNOLENCE [None]
  - TREMOR [None]
